FAERS Safety Report 9735039 (Version 1)
Quarter: 2013Q4

REPORT INFORMATION
  Report Type: Report from Study
  Country: ZA (occurrence: ZA)
  Receive Date: 20131206
  Receipt Date: 20131206
  Transmission Date: 20140711
  Serious: Yes (Death)
  Sender: FDA-Public Use
  Company Number: PHHY2013ZA142488

PATIENT
  Age: 81 Year
  Sex: Female
  Weight: 40 kg

DRUGS (1)
  1. HEXARONE [Suspect]
     Dosage: 1 DF, UNK
     Route: 048
     Dates: start: 2010, end: 2013

REACTIONS (1)
  - Death [Fatal]
